FAERS Safety Report 10243943 (Version 1)
Quarter: 2014Q2

REPORT INFORMATION
  Report Type: Spontaneous
  Country: US (occurrence: US)
  Receive Date: 20140618
  Receipt Date: 20140618
  Transmission Date: 20141212
  Serious: No
  Sender: FDA-Public Use
  Company Number: US-009507513-1405USA014271

PATIENT
  Sex: Male

DRUGS (6)
  1. CLARITIN ORAL SOLUTION [Suspect]
     Indication: HYPERSENSITIVITY
     Dosage: UNK, UNKNOWN
     Route: 048
  2. CLARITIN ORAL SOLUTION [Suspect]
     Indication: OCULAR HYPERAEMIA
  3. CLARITIN ORAL SOLUTION [Suspect]
     Indication: EYE PRURITUS
  4. CLARITIN ORAL SOLUTION [Suspect]
     Indication: LACRIMATION INCREASED
  5. CLARITIN ORAL SOLUTION [Suspect]
     Indication: SNEEZING
  6. CLARITIN ORAL SOLUTION [Suspect]
     Indication: COUGH

REACTIONS (1)
  - Drug ineffective [Unknown]
